FAERS Safety Report 16144144 (Version 2)
Quarter: 2019Q2

REPORT INFORMATION
  Report Type: Spontaneous
  Country: US (occurrence: US)
  Receive Date: 20190401
  Receipt Date: 20190416
  Transmission Date: 20190711
  Serious: Yes (Other)
  Sender: FDA-Public Use
  Company Number: US-009507513-1903USA011472

PATIENT
  Age: 19 Year
  Sex: Female
  Weight: 59.86 kg

DRUGS (1)
  1. NEXPLANON [Suspect]
     Active Substance: ETONOGESTREL
     Indication: CONTRACEPTION
     Dosage: 1 IMPLANT, EVERY 3 YEARS
     Route: 059
     Dates: start: 20190128

REACTIONS (5)
  - Implant site pruritus [Unknown]
  - Device dislocation [Not Recovered/Not Resolved]
  - Implant site pain [Unknown]
  - Implant site irritation [Unknown]
  - Implant site erythema [Unknown]

NARRATIVE: CASE EVENT DATE: 2019
